FAERS Safety Report 5333209-3 (Version None)
Quarter: 2007Q2

REPORT INFORMATION
  Report Type: 
  Country: None (occurrence: None)
  Receive Date: 20070524
  Receipt Date: 20070518
  Transmission Date: 20071010
  Serious: Yes (Other)
  Sender: FDA-Public Use
  Company Number: PHEH2007US07627

PATIENT
  Age: 62 Year
  Sex: Female

DRUGS (15)
  1. ESTRADERM [Suspect]
     Indication: HORMONE REPLACEMENT THERAPY
     Dosage: 0.05 MG/DAY, TWICE WEEKLY
     Route: 062
     Dates: start: 19870301, end: 19941020
  2. METFORMIN HCL [Concomitant]
  3. GLIPIZIDE [Concomitant]
  4. MECLIZINE [Concomitant]
  5. DETROL [Concomitant]
  6. ATENOLOL [Concomitant]
  7. RANITIDINE [Concomitant]
  8. NEURONTIN [Concomitant]
  9. LIPITOR [Concomitant]
  10. POTASSIUM CHLORIDE [Concomitant]
  11. ASPIRIN [Concomitant]
  12. CALTRATE [Concomitant]
  13. PREMARIN [Suspect]
     Indication: HORMONE REPLACEMENT THERAPY
     Dosage: 1.25 MG TO .625 MG, UNK
     Route: 048
     Dates: start: 19821201, end: 19870601
  14. PROVERA [Suspect]
     Indication: MENOPAUSAL SYMPTOMS
     Route: 048
     Dates: start: 19840601, end: 19941020
  15. NORLUTATE [Suspect]
     Indication: MENOPAUSAL SYMPTOMS
     Dosage: 6 MG, UNK
     Route: 048
     Dates: start: 19821201, end: 19840601

REACTIONS (23)
  - ANXIETY [None]
  - BONE DENSITOMETRY [None]
  - BREAST CANCER [None]
  - CAROTID ARTERY DISEASE [None]
  - CATHETERISATION CARDIAC [None]
  - CORONARY ARTERY DISEASE [None]
  - DIABETES MELLITUS [None]
  - DIABETIC NEPHROPATHY [None]
  - DYSPNOEA [None]
  - INTERVERTEBRAL DISC OPERATION [None]
  - ISCHAEMIA [None]
  - MALIGNANT BREAST LUMP REMOVAL [None]
  - NEPHROSCLEROSIS [None]
  - OEDEMA PERIPHERAL [None]
  - OSTEOPENIA [None]
  - PANIC ATTACK [None]
  - PROTEINURIA [None]
  - RENAL FAILURE [None]
  - SCAN MYOCARDIAL PERFUSION [None]
  - SYNOVIAL CYST [None]
  - THERAPEUTIC PROCEDURE [None]
  - VENTRICULAR EXTRASYSTOLES [None]
  - VERTIGO [None]
